FAERS Safety Report 9612901 (Version 1)
Quarter: 2013Q4

REPORT INFORMATION
  Report Type: Spontaneous
  Country: IT (occurrence: IT)
  Receive Date: 20131010
  Receipt Date: 20131010
  Transmission Date: 20140711
  Serious: Yes (Other)
  Sender: FDA-Public Use
  Company Number: IT-TEVA-435572ISR

PATIENT
  Age: 50 Year
  Sex: Female

DRUGS (6)
  1. EPIRUBICINA [Suspect]
     Indication: BREAST CANCER
     Route: 042
     Dates: start: 20130905
  2. SOLDESAM [Concomitant]
     Indication: PREMEDICATION
     Dosage: 8 MILLIGRAM DAILY;
     Route: 042
     Dates: start: 20130905, end: 20130926
  3. ENDOXAN BAXTER [Concomitant]
     Indication: BREAST CANCER
     Dosage: 985 MILLIGRAM DAILY;
     Route: 042
     Dates: start: 20130905, end: 20130926
  4. RANIDIL [Concomitant]
     Indication: PREMEDICATION
     Dosage: 100 MILLIGRAM DAILY;
     Route: 042
     Dates: start: 20130905, end: 20130926
  5. ALOXI 250MCG [Concomitant]
     Indication: PREMEDICATION
     Dosage: 250 MICROGRAM DAILY;
     Route: 042
     Dates: start: 20130905, end: 20130926
  6. EMEND [Concomitant]
     Indication: PROPHYLAXIS OF NAUSEA AND VOMITING
     Dosage: 125 MICROGRAM DAILY;
     Route: 048
     Dates: start: 20130905, end: 20130926

REACTIONS (2)
  - Psychotic disorder [Recovered/Resolved]
  - Self injurious behaviour [Recovered/Resolved]
